FAERS Safety Report 7700670-6 (Version None)
Quarter: 2011Q3

REPORT INFORMATION
  Report Type: 
  Country: None (occurrence: None)
  Receive Date: 20110822
  Receipt Date: 20110822
  Transmission Date: 20111222
  Serious: Yes (Other)
  Sender: FDA-Public Use
  Company Number: None

PATIENT
  Age: 25 Year
  Sex: Female
  Weight: 62.595 kg

DRUGS (1)
  1. LO LOESTRIN FE [Suspect]
     Indication: CONTRACEPTION
     Dosage: 1 TABLET
     Route: 048
     Dates: start: 20110816, end: 20110819

REACTIONS (1)
  - SUPPRESSED LACTATION [None]
